FAERS Safety Report 9892060 (Version 1)
Quarter: 2014Q1

REPORT INFORMATION
  Report Type: Spontaneous
  Country: US (occurrence: US)
  Receive Date: 20140212
  Receipt Date: 20140212
  Transmission Date: 20141002
  Serious: Yes (Hospitalization)
  Sender: FDA-Public Use
  Company Number: US-GLAXOSMITHKLINE-A1059841A

PATIENT
  Age: 85 Year
  Sex: Male

DRUGS (4)
  1. AVODART [Suspect]
     Indication: BENIGN PROSTATIC HYPERPLASIA
     Dosage: .5MG PER DAY
     Route: 048
     Dates: start: 2013
  2. VYTORIN [Concomitant]
  3. RAPAFLO [Concomitant]
  4. BABY ASPIRIN [Concomitant]

REACTIONS (5)
  - Urinary bladder haemorrhage [Not Recovered/Not Resolved]
  - Urinary bladder haemorrhage [Not Recovered/Not Resolved]
  - Haemorrhage [Not Recovered/Not Resolved]
  - Aneurysm [Not Recovered/Not Resolved]
  - Prostatic disorder [Not Recovered/Not Resolved]
